FAERS Safety Report 17298284 (Version 1)
Quarter: 2020Q1

REPORT INFORMATION
  Report Type: Report from Study
  Country: US (occurrence: US)
  Receive Date: 20200122
  Receipt Date: 20200122
  Transmission Date: 20200409
  Serious: Yes (Death)
  Sender: FDA-Public Use
  Company Number: NVSC2020US014414

PATIENT
  Age: 71 Year
  Sex: Female

DRUGS (1)
  1. ENTRESTO [Suspect]
     Active Substance: SACUBITRIL\VALSARTAN
     Indication: PRODUCT USED FOR UNKNOWN INDICATION
     Dosage: 1 DF, BID (49 MG  SACUBITRIL/ 51MG VALSARTAN)
     Route: 048
     Dates: start: 201911

REACTIONS (2)
  - Hypertension [Unknown]
  - Vascular rupture [Fatal]

NARRATIVE: CASE EVENT DATE: 20200109
